FAERS Safety Report 8449037-6 (Version None)
Quarter: 2012Q2

REPORT INFORMATION
  Report Type: 
  Country: None (occurrence: None)
  Receive Date: 20120619
  Receipt Date: 20120612
  Transmission Date: 20120825
  Serious: Yes (Hospitalization)
  Sender: FDA-Public Use
  Company Number: KR-JNJFOC-20120607832

PATIENT
  Age: 44 Year
  Sex: Male

DRUGS (2)
  1. TYLENOL-500 [Suspect]
     Indication: HEADACHE
     Dosage: 2 CAPLETS ONCE
     Route: 048
     Dates: start: 20120612, end: 20120612
  2. TYLENOL-500 [Suspect]
     Route: 048

REACTIONS (3)
  - PYREXIA [None]
  - SYNCOPE [None]
  - PRURITUS [None]
